FAERS Safety Report 5236405-9 (Version None)
Quarter: 2007Q1

REPORT INFORMATION
  Report Type: 
  Country: None (occurrence: None)
  Receive Date: 20070212
  Receipt Date: 20070131
  Transmission Date: 20070707
  Serious: Yes (Other)
  Sender: FDA-Public Use
  Company Number: CA-PFIZER INC-2007009407

PATIENT
  Age: 46 Year
  Sex: Female

DRUGS (7)
  1. LYRICA [Suspect]
     Indication: PAIN
     Route: 048
  2. CALCITONIN-SALMON [Concomitant]
  3. CELEBREX [Concomitant]
  4. PENNSAID [Concomitant]
  5. ASCORBIC ACID [Concomitant]
  6. PREMARIN [Concomitant]
  7. TYLENOL (CAPLET) [Concomitant]

REACTIONS (2)
  - FACIAL PALSY [None]
  - HYPOAESTHESIA FACIAL [None]
